FAERS Safety Report 20452925 (Version 1)
Quarter: 2022Q1

REPORT INFORMATION
  Report Type: Spontaneous
  Country: US (occurrence: US)
  Receive Date: 20220210
  Receipt Date: 20220210
  Transmission Date: 20220423
  Serious: Yes (Hospitalization)
  Sender: FDA-Public Use
  Company Number: US-GYP-001018

PATIENT
  Age: 54 Year
  Sex: Male

DRUGS (1)
  1. PREDNISONE [Suspect]
     Active Substance: PREDNISONE
     Indication: Hypereosinophilic syndrome
     Route: 048

REACTIONS (4)
  - Treatment noncompliance [Unknown]
  - Eosinophilia [Unknown]
  - Condition aggravated [Unknown]
  - Product use in unapproved indication [Unknown]
